FAERS Safety Report 8167205-8 (Version None)
Quarter: 2012Q1

REPORT INFORMATION
  Report Type: 
  Country: None (occurrence: None)
  Receive Date: 20120227
  Receipt Date: 20120216
  Transmission Date: 20120608
  Serious: Yes (Hospitalization, Other)
  Sender: FDA-Public Use
  Company Number: US-BAYER-2012-015330

PATIENT
  Sex: Female
  Weight: 3.1 kg

DRUGS (1)
  1. ACETYLSALICYLIC ACID SRT [Suspect]
     Route: 064

REACTIONS (10)
  - CATHETER SITE HAEMORRHAGE [None]
  - HYPOCALCAEMIA [None]
  - HYPOTONIA NEONATAL [None]
  - INFANTILE APNOEIC ATTACK [None]
  - BRADYCARDIA [None]
  - HYPOKALAEMIA [None]
  - NEONATAL ASPIRATION [None]
  - RESPIRATORY ALKALOSIS [None]
  - ACOUSTIC STIMULATION TESTS ABNORMAL [None]
  - INTERNATIONAL NORMALISED RATIO INCREASED [None]
